FAERS Safety Report 15662539 (Version 2)
Quarter: 2019Q1

REPORT INFORMATION
  Report Type: Other
  Country: US (occurrence: US)
  Receive Date: 20181127
  Receipt Date: 20190107
  Transmission Date: 20190417
  Serious: No
  Sender: FDA-Public Use
  Company Number: US-PRINSTON PHARMACEUTICAL INC.-2018PRN01464

PATIENT
  Age: 52 Year
  Sex: Female
  Weight: 74.83 kg

DRUGS (2)
  1. DULOXETINE. [Suspect]
     Active Substance: DULOXETINE
     Indication: POST-TRAUMATIC STRESS DISORDER
     Dosage: 60 MG, 1X/DAY
     Route: 048
     Dates: start: 201809
  2. DULOXETINE. [Suspect]
     Active Substance: DULOXETINE
     Indication: PANIC DISORDER

REACTIONS (6)
  - Arthralgia [Recovered/Resolved]
  - Product substitution issue [Recovered/Resolved]
  - Influenza like illness [Recovered/Resolved]
  - Gait disturbance [Recovered/Resolved]
  - Headache [Recovered/Resolved]
  - Pain in extremity [Recovered/Resolved]

NARRATIVE: CASE EVENT DATE: 201809
